FAERS Safety Report 17140641 (Version 1)
Quarter: 2019Q4

REPORT INFORMATION
  Report Type: Spontaneous
  Country: DE (occurrence: DE)
  Receive Date: 20191211
  Receipt Date: 20191211
  Transmission Date: 20200122
  Serious: Yes (Hospitalization)
  Sender: FDA-Public Use
  Company Number: NVSC2019DE064630

PATIENT
  Age: 8 Year
  Sex: Female

DRUGS (2)
  1. VALPROATE [Suspect]
     Active Substance: VALPROIC ACID
     Indication: SEIZURE
     Dosage: 25.7 (MG/KG/DIE)
     Route: 065
  2. PHENOBARBITAL. [Concomitant]
     Active Substance: PHENOBARBITAL
     Indication: EPILEPSY
     Dosage: 6.4 (MG/KG/DIE)
     Route: 065

REACTIONS (3)
  - Lactic acidosis [Recovered/Resolved]
  - Depressed level of consciousness [Recovered/Resolved]
  - Drug-induced liver injury [Recovered/Resolved]
